FAERS Safety Report 16056169 (Version 1)
Quarter: 2019Q1

REPORT INFORMATION
  Report Type: Spontaneous
  Country: GB (occurrence: GB)
  Receive Date: 20190311
  Receipt Date: 20190311
  Transmission Date: 20190418
  Serious: Yes (Other)
  Sender: FDA-Public Use
  Company Number: GB-GLAXOSMITHKLINE-GB2019GSK043303

PATIENT
  Sex: Female

DRUGS (1)
  1. NIQUITIN [Suspect]
     Active Substance: NICOTINE
     Indication: PRODUCT USED FOR UNKNOWN INDICATION
     Dosage: UNK UNK, PRN(ABOUT 1 YEAR, AROUND 12 X DAY)
     Route: 048
     Dates: start: 2018

REACTIONS (2)
  - Dysgeusia [Unknown]
  - Drug dependence [Unknown]
